FAERS Safety Report 7085511-5 (Version None)
Quarter: 2010Q4

REPORT INFORMATION
  Report Type: 
  Country: None (occurrence: None)
  Receive Date: 20101105
  Receipt Date: 20101028
  Transmission Date: 20110411
  Serious: Yes (Hospitalization)
  Sender: FDA-Public Use
  Company Number: JP-ASTRAZENECA-2010SE47080

PATIENT
  Age: 89 Year
  Sex: Male
  Weight: 66 kg

DRUGS (4)
  1. OMEPRAL [Suspect]
     Indication: GASTROINTESTINAL HAEMORRHAGE
     Route: 048
     Dates: start: 20100925, end: 20100929
  2. OMEPRAL INJECTION [Suspect]
     Indication: GASTROINTESTINAL HAEMORRHAGE
     Route: 042
     Dates: start: 20100925, end: 20100929
  3. ADONA [Concomitant]
     Indication: GASTROINTESTINAL HAEMORRHAGE
     Route: 042
     Dates: start: 20100925, end: 20100928
  4. RIKAVARIN [Concomitant]
     Indication: GASTROINTESTINAL HAEMORRHAGE
     Route: 042
     Dates: start: 20100925, end: 20100928

REACTIONS (1)
  - RHABDOMYOLYSIS [None]
